FAERS Safety Report 8351765 (Version 2)
Quarter: 2014Q3

REPORT INFORMATION
  Report Type: Spontaneous
  Country: US (occurrence: US)
  Receive Date: 20120124
  Receipt Date: 20140709
  Transmission Date: 20150326
  Serious: Yes (Hospitalization)
  Sender: FDA-Public Use
  Company Number: US-GLAXOSMITHKLINE-B0717851A

PATIENT
  Sex: Female
  Weight: 87.7 kg

DRUGS (9)
  1. AVANDIA [Suspect]
     Active Substance: ROSIGLITAZONE MALEATE
     Indication: DIABETES MELLITUS
     Dosage: 4MG TWICE PER DAY
     Route: 048
     Dates: start: 2001, end: 2004
  2. CALAN [Concomitant]
     Active Substance: VERAPAMIL HYDROCHLORIDE
  3. ALLEGRA [Concomitant]
     Active Substance: FEXOFENADINE HYDROCHLORIDE
  4. GLYBURIDE. [Concomitant]
     Active Substance: GLYBURIDE
  5. CELEBREX [Concomitant]
     Active Substance: CELECOXIB
  6. INSULIN [Concomitant]
     Active Substance: INSULIN NOS
  7. DIOVAN [Concomitant]
     Active Substance: VALSARTAN
  8. FLEXERIL [Concomitant]
     Active Substance: CYCLOBENZAPRINE HYDROCHLORIDE
  9. FLOVENT [Concomitant]
     Active Substance: FLUTICASONE PROPIONATE

REACTIONS (4)
  - Dyspnoea [Unknown]
  - Surgery [Unknown]
  - Coronary artery disease [Not Recovered/Not Resolved]
  - Cardiac disorder [Unknown]
